FAERS Safety Report 18072081 (Version 2)
Quarter: 2020Q3

REPORT INFORMATION
  Report Type: Spontaneous
  Country: US (occurrence: US)
  Receive Date: 20200727
  Receipt Date: 20200728
  Transmission Date: 20201103
  Serious: No
  Sender: FDA-Public Use
  Company Number: US-PFIZER INC-2020283910

PATIENT
  Sex: Female

DRUGS (2)
  1. EFFEXOR XR [Suspect]
     Active Substance: VENLAFAXINE HYDROCHLORIDE
     Indication: ANTIINFLAMMATORY THERAPY
     Dosage: UNK
  2. EFFEXOR XR [Suspect]
     Active Substance: VENLAFAXINE HYDROCHLORIDE
     Indication: NEURITIS

REACTIONS (12)
  - Pain [Unknown]
  - Headache [Unknown]
  - Hyperhidrosis [Unknown]
  - Feeling abnormal [Unknown]
  - Muscle disorder [Unknown]
  - Loss of personal independence in daily activities [Unknown]
  - Off label use [Unknown]
  - Muscle twitching [Unknown]
  - Product use in unapproved indication [Unknown]
  - Neck pain [Unknown]
  - Nausea [Unknown]
  - Vision blurred [Unknown]
